FAERS Safety Report 17495216 (Version 1)
Quarter: 2020Q1

REPORT INFORMATION
  Report Type: Spontaneous
  Country: US (occurrence: US)
  Receive Date: 20200221
  Receipt Date: 20200221
  Transmission Date: 20200409
  Serious: Yes (Life-Threatening)
  Sender: FDA-Public Use
  Company Number: None

PATIENT

DRUGS (2)
  1. FASENRA [Suspect]
     Active Substance: BENRALIZUMAB
     Indication: CHRONIC OBSTRUCTIVE PULMONARY DISEASE
  2. FASENRA [Suspect]
     Active Substance: BENRALIZUMAB
     Indication: ALLERGIC EOSINOPHILIA
     Dosage: ?          QUANTITY:30 MG MILLIGRAM(S);OTHER FREQUENCY:EVERY 8 WEEKS;?
     Route: 058
     Dates: start: 20190708

REACTIONS (1)
  - Laryngeal cancer [None]

NARRATIVE: CASE EVENT DATE: 20200203
